FAERS Safety Report 14506517 (Version 1)
Quarter: 2018Q1

REPORT INFORMATION
  Report Type: Spontaneous
  Country: US (occurrence: US)
  Receive Date: 20180208
  Receipt Date: 20180208
  Transmission Date: 20180509
  Serious: Yes (Life-Threatening, Hospitalization, Other)
  Sender: FDA-Public Use
  Company Number: None

PATIENT
  Age: 53 Year
  Sex: Male
  Weight: 72.57 kg

DRUGS (1)
  1. MELOXICAM 7.5MG [Suspect]
     Active Substance: MELOXICAM
     Indication: BURSITIS
     Dates: start: 20171005

REACTIONS (3)
  - Road traffic accident [None]
  - Injury [None]
  - Loss of consciousness [None]

NARRATIVE: CASE EVENT DATE: 20171005
